FAERS Safety Report 4393300-5 (Version None)
Quarter: 2004Q3

REPORT INFORMATION
  Report Type: 
  Country: None (occurrence: None)
  Receive Date: 20040701
  Receipt Date: 20040610
  Transmission Date: 20050211
  Serious: Yes (Death)
  Sender: FDA-Public Use
  Company Number: EWC040639607

PATIENT
  Age: 18 Year
  Sex: Male

DRUGS (14)
  1. XIGRIS [Suspect]
     Indication: MENINGOCOCCAL SEPSIS
  2. PENICILLIN [Concomitant]
  3. METRONIDAZOLE [Concomitant]
  4. DOPAMINE HCL [Concomitant]
  5. NORADRENALINE [Concomitant]
  6. DEXAMETHASONE [Concomitant]
  7. PARACETAMOL (PARACETAMOL) [Concomitant]
  8. FUROSEMIDE [Concomitant]
  9. MIDAZOLAM HCL [Concomitant]
  10. SUFENTANIL [Concomitant]
  11. SUCRALFATE [Concomitant]
  12. PANCRON [Concomitant]
  13. HETASTARCH IN SODIUM CHLORIDE [Concomitant]
  14. NEOSTIGMINE [Concomitant]

REACTIONS (3)
  - BRAIN COMPRESSION [None]
  - BRAIN OEDEMA [None]
  - CEREBRAL HAEMORRHAGE [None]
